FAERS Safety Report 20075582 (Version 1)
Quarter: 2021Q4

REPORT INFORMATION
  Report Type: Spontaneous
  Country: US (occurrence: US)
  Receive Date: 20211116
  Receipt Date: 20211116
  Transmission Date: 20220303
  Serious: No
  Sender: FDA-Public Use
  Company Number: US-KARYOPHARM-2021KPT001301

PATIENT

DRUGS (16)
  1. XPOVIO [Suspect]
     Active Substance: SELINEXOR
     Indication: Product used for unknown indication
     Dosage: 100 MG, WEEKLY
     Route: 048
     Dates: start: 20211005
  2. ACYCLOVIR [Concomitant]
     Active Substance: ACYCLOVIR
  3. AMLODIPINE [Concomitant]
     Active Substance: AMLODIPINE BESYLATE
  4. DECADRON [Concomitant]
     Active Substance: DEXAMETHASONE
  5. ENALAPRIL [Concomitant]
     Active Substance: ENALAPRIL
  6. FLECAINIDE [Concomitant]
     Active Substance: FLECAINIDE
  7. HYDROCODONE [Concomitant]
     Active Substance: HYDROCODONE
  8. IMODIUM [Concomitant]
     Active Substance: LOPERAMIDE HYDROCHLORIDE
  9. MAGNESIUM CITRATE [Concomitant]
     Active Substance: MAGNESIUM CITRATE
  10. METOPROLOL [Concomitant]
     Active Substance: METOPROLOL
  11. PAMIDRONATE [Concomitant]
     Active Substance: PAMIDRONATE DISODIUM
  12. POTASSIUM CHLORIDE [Concomitant]
     Active Substance: POTASSIUM CHLORIDE
  13. PROTONIX [Concomitant]
     Active Substance: PANTOPRAZOLE SODIUM
  14. VELCADE [Concomitant]
     Active Substance: BORTEZOMIB
  15. XARELTO [Concomitant]
     Active Substance: RIVAROXABAN
  16. ZOFRAN [Concomitant]
     Active Substance: ONDANSETRON HYDROCHLORIDE

REACTIONS (3)
  - Nausea [Not Recovered/Not Resolved]
  - Constipation [Not Recovered/Not Resolved]
  - Dizziness [Not Recovered/Not Resolved]

NARRATIVE: CASE EVENT DATE: 20211001
